FAERS Safety Report 12704901 (Version 1)
Quarter: 2016Q3

REPORT INFORMATION
  Report Type: Report from Study
  Country: US (occurrence: US)
  Receive Date: 20160831
  Receipt Date: 20160831
  Transmission Date: 20161109
  Serious: Yes (Other)
  Sender: FDA-Public Use
  Company Number: US-GILEAD-2016-0230258

PATIENT
  Age: 63 Year
  Sex: Female

DRUGS (3)
  1. IDELALISIB [Suspect]
     Active Substance: IDELALISIB
     Indication: B-CELL LYMPHOMA
  2. IDELALISIB [Suspect]
     Active Substance: IDELALISIB
     Indication: TONGUE NEOPLASM MALIGNANT STAGE UNSPECIFIED
     Dosage: 150 MG, UNK
     Route: 048
     Dates: start: 20160408
  3. ZANTAC [Concomitant]
     Active Substance: RANITIDINE HYDROCHLORIDE

REACTIONS (4)
  - Herpes zoster [Unknown]
  - Fatigue [Unknown]
  - Lymphoma [Unknown]
  - Ear swelling [Unknown]
